FAERS Safety Report 5015143-1 (Version None)
Quarter: 2006Q2

REPORT INFORMATION
  Report Type: 
  Country: None (occurrence: None)
  Receive Date: 20060530
  Receipt Date: 20060522
  Transmission Date: 20061013
  Serious: Yes (Death, Hospitalization)
  Sender: FDA-Public Use
  Company Number: 440001N06JPN

PATIENT
  Age: 25 Year
  Sex: Male

DRUGS (6)
  1. SEROSTIM [Suspect]
     Dosage: 5 MG, 1 IN 1 DAYS, SUBCUTANEOUS
     Route: 058
     Dates: start: 20041018, end: 20050206
  2. TENOFOVIR DISOPROXIL FUMARATE [Concomitant]
  3. LAMIVUDINE [Concomitant]
  4. FACTOR VIII, RECOMBINANT [Concomitant]
  5. FACTOR IX COMPLEX [Concomitant]
  6. KALETRA [Concomitant]

REACTIONS (5)
  - DYSPNOEA [None]
  - HEPATIC FAILURE [None]
  - SEPTIC SHOCK [None]
  - STAPHYLOCOCCAL INFECTION [None]
  - URINE OUTPUT DECREASED [None]
